FAERS Safety Report 8998304 (Version 2)
Quarter: 2013Q1

REPORT INFORMATION
  Report Type: Spontaneous
  Country: US (occurrence: US)
  Receive Date: 20130104
  Receipt Date: 20130118
  Transmission Date: 20140127
  Serious: Yes (Death, Hospitalization)
  Sender: FDA-Public Use
  Company Number: US-VERTEX PHARMACEUTICALS INC.-2013-000121

PATIENT
  Sex: Male

DRUGS (4)
  1. INCIVEK [Suspect]
     Indication: HEPATITIS C
     Dosage: 750 MG, TID
     Route: 048
     Dates: start: 20121105, end: 201211
  2. RIBAVIRIN [Suspect]
     Indication: HEPATITIS C
     Dosage: 400MG AM, 200MG PM
     Route: 048
     Dates: start: 20121105, end: 201211
  3. PEGINTERFERON [Suspect]
     Indication: HEPATITIS C
     Dosage: 180 ?G, QW
     Route: 058
     Dates: start: 20121105, end: 201211
  4. CYCLOSPORINE [Concomitant]

REACTIONS (5)
  - Hepatitis cholestatic [Fatal]
  - Acute respiratory failure [Fatal]
  - Hypovolaemia [Fatal]
  - Renal failure acute [Fatal]
  - Off label use [Recovered/Resolved]
